FAERS Safety Report 8306974-0 (Version None)
Quarter: 2012Q2

REPORT INFORMATION
  Report Type: 
  Country: None (occurrence: None)
  Receive Date: 20120424
  Receipt Date: 20120410
  Transmission Date: 20120825
  Serious: Yes (Hospitalization)
  Sender: FDA-Public Use
  Company Number: DE-COVIDIEN/TYCO HEALTHCARE/MALLINCKRODT-T201201194

PATIENT
  Sex: Female

DRUGS (12)
  1. EXALGO [Suspect]
     Indication: PAIN
     Dosage: 4 MG, QD
     Route: 048
     Dates: start: 20111115, end: 20111215
  2. ACTRAPID                           /00646001/ [Concomitant]
     Route: 058
  3. SIMVASTATIN [Concomitant]
     Dosage: 40 MG, QD
     Route: 048
  4. ACTRAPHANE [Concomitant]
     Route: 058
  5. CARVEDILOL [Concomitant]
     Dosage: 25 MG, QD
     Route: 048
  6. EXALGO [Suspect]
     Dosage: 8 MG, QD
     Route: 048
     Dates: start: 20111216, end: 20120109
  7. AMLODIPINE [Concomitant]
     Dosage: 10 MG, QD
     Route: 048
  8. ENALAPRIL MALEATE [Concomitant]
     Dosage: 20 MG, QD
     Route: 048
  9. ASPIRIN [Concomitant]
     Dosage: 100 MG, QD
     Route: 048
  10. EXALGO [Suspect]
     Dosage: 16 MG, QD
     Route: 048
     Dates: start: 20120110, end: 20120209
  11. EXALGO [Suspect]
     Indication: OSTEOARTHRITIS
     Dosage: 32 MG, QD
     Route: 048
     Dates: start: 20120210
  12. GABAPENTIN [Concomitant]
     Dosage: 1200 MG, QD
     Route: 048

REACTIONS (5)
  - NAUSEA [None]
  - MYOCARDIAL INFARCTION [None]
  - HYPERHIDROSIS [None]
  - DRUG INEFFECTIVE [None]
  - VERTIGO [None]
